FAERS Safety Report 16910391 (Version 2)
Quarter: 2019Q4

REPORT INFORMATION
  Report Type: Spontaneous
  Country: DE (occurrence: DE)
  Receive Date: 20191011
  Receipt Date: 20191111
  Transmission Date: 20200122
  Serious: Yes (Other)
  Sender: FDA-Public Use
  Company Number: DE-GLAXOSMITHKLINE-DE2019181353

PATIENT
  Age: 10 Month
  Sex: Male
  Weight: 3 kg

DRUGS (1)
  1. LAMOTRIGINE. [Suspect]
     Active Substance: LAMOTRIGINE
     Indication: EPILEPSY
     Dosage: 400 MG, QD
     Route: 063

REACTIONS (4)
  - Atrial septal defect [Unknown]
  - Apparent life threatening event [Recovered/Resolved]
  - Exposure via breast milk [Unknown]
  - Patent ductus arteriosus [Recovering/Resolving]
